FAERS Safety Report 8830045 (Version 6)
Quarter: 2014Q1

REPORT INFORMATION
  Report Type: Spontaneous
  Country: US (occurrence: US)
  Receive Date: 20121008
  Receipt Date: 20140203
  Transmission Date: 20141002
  Serious: Yes (Hospitalization, Disabling, Other)
  Sender: FDA-Public Use
  Company Number: US-009507513-1112USA01781

PATIENT
  Sex: Female
  Weight: 68.27 kg

DRUGS (16)
  1. FOSAMAX [Suspect]
     Indication: OSTEOPOROSIS
     Dosage: UNK UNK, QD
     Route: 048
     Dates: start: 1998
  2. FOSAMAX [Suspect]
     Dosage: 70 MG, QW
     Route: 048
     Dates: start: 20021010
  3. FOSAMAX [Suspect]
     Dosage: 10 MG, UNK
     Route: 048
     Dates: start: 19990319
  4. FOSAMAX [Suspect]
     Dosage: 70 MG, QW
     Route: 048
     Dates: start: 20100124
  5. GLUCOSAMINE CHONDROITIN [Concomitant]
  6. ASPIRIN [Concomitant]
     Dosage: 81 DF, QD
  7. AVAPRO [Concomitant]
     Indication: HYPERTENSION
     Dosage: 300 MG, QD
  8. NORVASC [Concomitant]
     Indication: HYPERTENSION
     Dosage: UNK, QD
  9. ATENOLOL [Concomitant]
     Indication: HYPERTENSION
     Dosage: 25 MG, BID
  10. VITAMINS (UNSPECIFIED) [Concomitant]
  11. TYLENOL [Concomitant]
     Dosage: UNK, PRN
  12. VICODIN [Concomitant]
     Dosage: UNK, PRN
  13. PEPCID [Concomitant]
     Dosage: 20 MG, BID
     Route: 048
  14. LOVENOX [Concomitant]
     Dosage: 30 MG, BID
     Route: 058
  15. FERROUS SULFATE [Concomitant]
     Dosage: 325 MG, TID
  16. COLACE [Concomitant]
     Dosage: 50 MG, PRN
     Route: 048

REACTIONS (26)
  - Femur fracture [Not Recovered/Not Resolved]
  - Internal fixation of fracture [Not Recovered/Not Resolved]
  - Femur fracture [Recovered/Resolved]
  - Intramedullary rod insertion [Not Recovered/Not Resolved]
  - Cholecystectomy [Unknown]
  - Haemoglobin decreased [Unknown]
  - Blood urine present [Unknown]
  - Cardiomegaly [Unknown]
  - Fall [Unknown]
  - Blood urine present [Unknown]
  - Temporomandibular joint syndrome [Unknown]
  - Cough [Unknown]
  - Orthostatic intolerance [Recovered/Resolved]
  - Cholecystitis chronic [Not Recovered/Not Resolved]
  - Cholelithiasis [Unknown]
  - Hypothyroidism [Unknown]
  - Hyperthyroidism [Unknown]
  - Osteopenia [Unknown]
  - Bursitis [Unknown]
  - Hypoaesthesia [Unknown]
  - Iliotibial band syndrome [Unknown]
  - Fractured sacrum [Unknown]
  - Device failure [Unknown]
  - Pain in extremity [Unknown]
  - Abdominal pain [Unknown]
  - Abdominal pain [Recovered/Resolved]
